FAERS Safety Report 13864458 (Version 2)
Quarter: 2017Q3

REPORT INFORMATION
  Report Type: Spontaneous
  Country: FR (occurrence: FR)
  Receive Date: 20170814
  Receipt Date: 20170911
  Transmission Date: 20171127
  Serious: Yes (Other)
  Sender: FDA-Public Use
  Company Number: FR-NOVOPROD-557640

PATIENT
  Sex: Male

DRUGS (1)
  1. NOVORAPID [Suspect]
     Active Substance: INSULIN ASPART
     Indication: DIABETES MELLITUS
     Dosage: UNK(YEAR AND A HALF)
     Route: 058

REACTIONS (3)
  - Diabetic ketoacidosis [Unknown]
  - Product container issue [Unknown]
  - Product leakage [Unknown]

NARRATIVE: CASE EVENT DATE: 2017
